FAERS Safety Report 9185265 (Version 1)
Quarter: 2012Q4

REPORT INFORMATION
  Report Type: 
  Country: US (occurrence: US)
  Receive Date: 20121101
  Receipt Date: 20121101
  Transmission Date: 20130627
  Serious: Yes (Other)
  Sender: FDA-Public Use
  Company Number: US-PFIZER INC-2012268737

PATIENT
  Age: 58 Year
  Sex: Female
  Weight: 63.49 kg

DRUGS (2)
  1. LYRICA [Suspect]
     Indication: FIBROMYALGIA
     Dosage: 75 mg, 1x/day
     Route: 048
     Dates: start: 20121003, end: 201210
  2. LYRICA [Interacting]
     Dosage: 75 mg, every other day
     Route: 048
     Dates: start: 201210

REACTIONS (10)
  - Dysstasia [Unknown]
  - Head injury [Unknown]
  - Disturbance in attention [Unknown]
  - Fall [Unknown]
  - Drug interaction [Unknown]
  - Drug intolerance [Unknown]
  - Feeling drunk [Unknown]
  - Abnormal behaviour [Unknown]
  - Grip strength decreased [Unknown]
  - Muscle spasms [Unknown]
